FAERS Safety Report 7717376-X (Version None)
Quarter: 2011Q3

REPORT INFORMATION
  Report Type: 
  Country: None (occurrence: None)
  Receive Date: 20110830
  Receipt Date: 20110822
  Transmission Date: 20111222
  Serious: Yes (Hospitalization)
  Sender: FDA-Public Use
  Company Number: US-JNJFOC-20110811006

PATIENT
  Sex: Female
  Weight: 102.6 kg

DRUGS (20)
  1. MELOXICAM [Concomitant]
     Route: 048
     Dates: start: 20110416
  2. GOLIMUMAB [Suspect]
     Route: 058
     Dates: start: 20060811
  3. METHOTREXATE [Suspect]
     Indication: RHEUMATOID ARTHRITIS
     Route: 048
     Dates: start: 20060909, end: 20060930
  4. BLACK COHASH [Concomitant]
     Dates: start: 20020101
  5. VITAMIN D [Concomitant]
     Route: 048
     Dates: start: 20060705
  6. OMEPRAZOLE [Concomitant]
     Route: 048
     Dates: start: 20110416
  7. METHOTREXATE [Suspect]
     Route: 048
     Dates: start: 20061007, end: 20070217
  8. FOLIC ACID [Concomitant]
     Route: 048
     Dates: start: 20060726
  9. ENBREL [Concomitant]
     Route: 058
     Dates: start: 20110703
  10. GOLIMUMAB [Suspect]
     Route: 058
     Dates: start: 20070223
  11. METHOTREXATE [Suspect]
     Route: 048
     Dates: start: 20070224, end: 20071027
  12. LORTAB [Concomitant]
     Route: 048
     Dates: start: 20060501
  13. VITAMIN B-12 [Concomitant]
     Route: 048
     Dates: start: 20080630
  14. METHOTREXATE [Concomitant]
     Route: 048
     Dates: start: 20080712
  15. GOLIMUMAB [Suspect]
     Indication: RHEUMATOID ARTHRITIS
     Route: 058
     Dates: start: 20110610
  16. METHOTREXATE [Suspect]
     Route: 048
     Dates: start: 20060812, end: 20060902
  17. CYCLOBENZAPRINE [Concomitant]
     Route: 048
     Dates: start: 20090212
  18. MULTI-VITAMINS [Concomitant]
     Route: 048
     Dates: start: 20050101
  19. PREDNISONE [Concomitant]
     Route: 048
     Dates: start: 20071103
  20. CALCIUM CARBONATE [Concomitant]
     Route: 048
     Dates: start: 20060705

REACTIONS (1)
  - CELLULITIS [None]
